FAERS Safety Report 4535164-2 (Version None)
Quarter: 2004Q4

REPORT INFORMATION
  Report Type: 
  Country: None (occurrence: None)
  Receive Date: 20041222
  Receipt Date: 20031027
  Transmission Date: 20050328
  Serious: No
  Sender: FDA-Public Use
  Company Number: US-BRISTOL-MYERS SQUIBB COMPANY-12420519

PATIENT
  Age: 15 Year
  Sex: Female
  Weight: 52 kg

DRUGS (3)
  1. DOVONEX [Suspect]
     Indication: ECZEMA
     Dosage: DURATION OF THERAPY: 2-3 DAYS
     Route: 061
     Dates: start: 20031020
  2. DOVONEX [Suspect]
     Indication: PSORIASIS
     Dosage: DURATION OF THERAPY: 2-3 DAYS
     Route: 061
     Dates: start: 20031020
  3. AMLACTIN [Concomitant]

REACTIONS (1)
  - RASH [None]
